FAERS Safety Report 10110982 (Version 1)
Quarter: 2014Q2

REPORT INFORMATION
  Report Type: Spontaneous
  Country: CA (occurrence: CA)
  Receive Date: 20140425
  Receipt Date: 20140425
  Transmission Date: 20141212
  Serious: Yes (Hospitalization, Other)
  Sender: FDA-Public Use
  Company Number: CA-BAXTER-2014BAX019466

PATIENT
  Age: 69 Year
  Sex: Male

DRUGS (2)
  1. DIANEAL PD4 SOLUTION WITH 2.5% DEXTROSE AND 2.5 MEQ/L CALCIUM [Suspect]
     Indication: PERITONEAL DIALYSIS
     Dosage: 3 BAGS
     Route: 033
  2. METOPROLOL [Suspect]
     Indication: CARDIAC DISORDER

REACTIONS (8)
  - Blood pressure decreased [Unknown]
  - Atrioventricular block [Unknown]
  - Fall [Recovered/Resolved]
  - Spinal column injury [Not Recovered/Not Resolved]
  - Muscle strain [Recovered/Resolved]
  - Contusion [Recovered/Resolved]
  - Foot fracture [Recovered/Resolved]
  - Skin discolouration [Recovered/Resolved]
